FAERS Safety Report 6664036-2 (Version None)
Quarter: 2010Q2

REPORT INFORMATION
  Report Type: 
  Country: None (occurrence: None)
  Receive Date: 20100401
  Receipt Date: 20100329
  Transmission Date: 20101027
  Serious: Yes (Other)
  Sender: FDA-Public Use
  Company Number: A0844029A

PATIENT
  Age: 82 Year
  Sex: Female

DRUGS (7)
  1. REQUIP XL [Suspect]
     Indication: PARKINSON'S DISEASE
     Dosage: 2MG TWICE PER DAY
     Route: 048
     Dates: start: 20091201, end: 20100126
  2. ROPINIROLE [Suspect]
     Indication: PARKINSON'S DISEASE
     Dosage: 1MG THREE TIMES PER DAY
     Route: 048
     Dates: start: 20100127
  3. BYSTOLIC [Concomitant]
  4. CARBIDOPA-LEVODOPA [Concomitant]
  5. THYROID MEDICATION [Concomitant]
  6. XANAX [Concomitant]
  7. LEXAPRO [Concomitant]

REACTIONS (5)
  - FATIGUE [None]
  - OEDEMA PERIPHERAL [None]
  - PARKINSONISM [None]
  - THERAPEUTIC RESPONSE UNEXPECTED [None]
  - WEIGHT INCREASED [None]
